APPROVED DRUG PRODUCT: BUDESONIDE
Active Ingredient: BUDESONIDE
Strength: 3MG
Dosage Form/Route: CAPSULE, DELAYED RELEASE;ORAL
Application: A206724 | Product #001
Applicant: NATCO PHARMA LTD
Approved: Nov 23, 2016 | RLD: No | RS: No | Type: DISCN